FAERS Safety Report 9826284 (Version 1)
Quarter: 2013Q4

REPORT INFORMATION
  Report Type: Spontaneous
  Country: GB (occurrence: None)
  Receive Date: 20131112
  Receipt Date: 20131112
  Transmission Date: 20140711
  Serious: Yes (Hospitalization)
  Sender: FDA-Public Use
  Company Number: 2012-01837

PATIENT
  Age: 84 Year
  Sex: Female

DRUGS (4)
  1. LISINOPRIL (TABLETS) (LISINOPRIL) [Suspect]
     Indication: BLOOD PRESSURE
     Dosage: 10MG, (10MG, 1 IN 1 D), UNKNOWN
  2. AMLODIPINE (TABLETS) [Suspect]
     Indication: BLOOD PRESSURE
     Dosage: 5MG (5 MG, 1 IN 1 D), UNKNOWN
  3. FOLIC ACID (TABLETS) [Concomitant]
  4. FERROUS FUMARATE (GALFER SYRUP) [Concomitant]

REACTIONS (4)
  - Hypertension [None]
  - Muscle spasms [None]
  - Muscle spasms [None]
  - Drug ineffective [None]
